FAERS Safety Report 7712985-6 (Version None)
Quarter: 2011Q3

REPORT INFORMATION
  Report Type: 
  Country: None (occurrence: None)
  Receive Date: 20110822
  Receipt Date: 20110804
  Transmission Date: 20111222
  Serious: Yes (Hospitalization, Other)
  Sender: FDA-Public Use
  Company Number: 2011MA008881

PATIENT
  Age: 17 Year
  Sex: Male
  Weight: 68 kg

DRUGS (4)
  1. DIPYRONE INJ [Suspect]
     Indication: PAIN
     Dosage: 30 GTT;QID;
  2. PANTOPRAZOLE [Suspect]
     Dosage: 20 MG
  3. DICLOFENAC SODIUM [Suspect]
     Indication: PAIN
  4. TILIDINE (TILIDINE) [Suspect]
     Indication: PAIN
     Dosage: 12.5 MG;

REACTIONS (8)
  - NORMOCHROMIC NORMOCYTIC ANAEMIA [None]
  - GAMMA-GLUTAMYLTRANSFERASE INCREASED [None]
  - AGRANULOCYTOSIS [None]
  - CHILLS [None]
  - MALAISE [None]
  - ODYNOPHAGIA [None]
  - FATIGUE [None]
  - ALANINE AMINOTRANSFERASE INCREASED [None]
